FAERS Safety Report 6278506-2 (Version None)
Quarter: 2009Q3

REPORT INFORMATION
  Report Type: 
  Country: None (occurrence: None)
  Receive Date: 20090721
  Receipt Date: 20090708
  Transmission Date: 20100115
  Serious: Yes (Other)
  Sender: FDA-Public Use
  Company Number: 230643K08USA

PATIENT
  Age: 37 Year
  Sex: Male
  Weight: 132 kg

DRUGS (1)
  1. REBIF [Suspect]
     Indication: MULTIPLE SCLEROSIS
     Dosage: 44 MCG, 3 IN 1 WEEKS, SUBCUTANEOUS
     Route: 058
     Dates: start: 20071111

REACTIONS (4)
  - ARTHRALGIA [None]
  - MENISCUS LESION [None]
  - MUSCLE TIGHTNESS [None]
  - MYALGIA [None]
